FAERS Safety Report 11639752 (Version 2)
Quarter: 2015Q4

REPORT INFORMATION
  Report Type: Spontaneous
  Country: US (occurrence: US)
  Receive Date: 20151019
  Receipt Date: 20151202
  Transmission Date: 20160304
  Serious: Yes (Other)
  Sender: FDA-Public Use
  Company Number: PHEH2015US020519

PATIENT
  Age: 39 Year
  Sex: Male

DRUGS (3)
  1. OXYCODONE [Concomitant]
     Active Substance: OXYCODONE
     Indication: PRODUCT USED FOR UNKNOWN INDICATION
     Dosage: 30 MG, UNK
     Route: 065
  2. MOTRIN [Concomitant]
     Active Substance: IBUPROFEN
     Indication: PRODUCT USED FOR UNKNOWN INDICATION
     Dosage: 600 MG, UNK
     Route: 065
  3. SANDOSTATIN LAR DEPOT [Suspect]
     Active Substance: OCTREOTIDE ACETATE
     Indication: CARCINOID SYNDROME
     Dosage: 30 MG, BIW (EVERY 2 WEEKS)
     Route: 065

REACTIONS (11)
  - Feeling abnormal [Unknown]
  - Carcinoid crisis [Unknown]
  - Inappropriate schedule of drug administration [Unknown]
  - Product quality issue [Unknown]
  - Heart rate increased [Unknown]
  - Diarrhoea [Unknown]
  - Malaise [Unknown]
  - Injection site erythema [Unknown]
  - Underdose [Unknown]
  - Erythema [Unknown]
  - Syringe issue [Unknown]

NARRATIVE: CASE EVENT DATE: 20151008
